FAERS Safety Report 16915085 (Version 1)
Quarter: 2019Q4

REPORT INFORMATION
  Report Type: Spontaneous
  Country: US (occurrence: US)
  Receive Date: 20191014
  Receipt Date: 20191014
  Transmission Date: 20200122
  Serious: No
  Sender: FDA-Public Use
  Company Number: US-SHIRE-US201933927

PATIENT
  Age: 32 Year
  Sex: Female

DRUGS (1)
  1. ADDERALL XR [Suspect]
     Active Substance: AMPHETAMINE ASPARTATE\AMPHETAMINE SULFATE\DEXTROAMPHETAMINE SACCHARATE\DEXTROAMPHETAMINE SULFATE
     Indication: ATTENTION DEFICIT/HYPERACTIVITY DISORDER
     Dosage: 30 MILLIGRAM, 2X/DAY:BID
     Route: 065

REACTIONS (5)
  - Chapped lips [Unknown]
  - Sneezing [Unknown]
  - Rhinorrhoea [Unknown]
  - Oral mucosal blistering [Unknown]
  - Lip erythema [Unknown]

NARRATIVE: CASE EVENT DATE: 20191007
